FAERS Safety Report 7344763-4 (Version None)
Quarter: 2011Q1

REPORT INFORMATION
  Report Type: 
  Country: None (occurrence: None)
  Receive Date: 20110307
  Receipt Date: 20110307
  Transmission Date: 20110831
  Serious: Yes (Death)
  Sender: FDA-Public Use
  Company Number: None

PATIENT
  Age: 54 Year
  Sex: Male
  Weight: 88 kg

DRUGS (3)
  1. ENOXAPARIN SODIUM [Suspect]
     Indication: PULMONARY EMBOLISM
     Dosage: 100 MG Q12H SQ
     Dates: start: 20100924, end: 20100925
  2. ASPIRIN [Concomitant]
  3. CLOPIDOGREL [Concomitant]

REACTIONS (5)
  - HAEMATEMESIS [None]
  - PULSE ABSENT [None]
  - ABDOMINAL PAIN [None]
  - DIARRHOEA [None]
  - REFUSAL OF TREATMENT BY PATIENT [None]
